FAERS Safety Report 7270589-6 (Version None)
Quarter: 2011Q1

REPORT INFORMATION
  Report Type: 
  Country: None (occurrence: None)
  Receive Date: 20110202
  Receipt Date: 20110124
  Transmission Date: 20110831
  Serious: Yes (Death, Hospitalization)
  Sender: FDA-Public Use
  Company Number: A0785668A

PATIENT
  Age: 80 Year
  Sex: Female
  Weight: 125 kg

DRUGS (12)
  1. AVANDIA [Suspect]
     Dosage: 8MG PER DAY
     Route: 048
     Dates: start: 20000101, end: 20070101
  2. AMITRIPTYLINE HCL [Concomitant]
  3. MAXZIDE [Concomitant]
  4. LEXAPRO [Concomitant]
  5. SYNTHROID [Concomitant]
  6. FOSAMAX [Concomitant]
  7. SINGULAIR [Concomitant]
  8. VYTORIN [Concomitant]
  9. DARVOCET-N 100 [Concomitant]
  10. DURAGESIC-50 [Concomitant]
  11. INSULIN [Concomitant]
  12. METOPROLOL [Concomitant]

REACTIONS (5)
  - CARDIAC ARREST [None]
  - DIABETES MELLITUS INADEQUATE CONTROL [None]
  - CARDIAC FAILURE CONGESTIVE [None]
  - MYOCARDIAL INFARCTION [None]
  - CORONARY ARTERY DISEASE [None]
